FAERS Safety Report 9161220 (Version 2)
Quarter: 2013Q1

REPORT INFORMATION
  Report Type: Spontaneous
  Country: NL (occurrence: NL)
  Receive Date: 20130313
  Receipt Date: 20130325
  Transmission Date: 20140127
  Serious: Yes (Death, Hospitalization)
  Sender: FDA-Public Use
  Company Number: NL-009507513-1303NLD004949

PATIENT
  Age: 20 Year
  Sex: Female
  Weight: 90 kg

DRUGS (2)
  1. MARVELON [Suspect]
     Indication: MENORRHAGIA
     Dosage: 1 TIMES PER 1 CYCLICAL 1 DF
     Route: 048
     Dates: start: 1992
  2. MARVELON [Suspect]
     Indication: CONTRACEPTION

REACTIONS (2)
  - Pulmonary embolism [Fatal]
  - Thrombosis [Fatal]
